FAERS Safety Report 5923821-2 (Version None)
Quarter: 2008Q3

REPORT INFORMATION
  Report Type: 
  Country: None (occurrence: None)
  Receive Date: 20080909
  Receipt Date: 20080702
  Transmission Date: 20090109
  Serious: Yes (Death)
  Sender: FDA-Public Use
  Company Number: 163-20785-08070094

PATIENT
  Age: 54 Year
  Sex: Male

DRUGS (3)
  1. THALOMID [Suspect]
     Indication: PROSTATE CANCER
     Dosage: 100-200MG, DAILY, ORAL : 100 MG, 1 IN 1 D, ORAL : 200 MG, 2 IN 1 D, ORAL
     Route: 048
     Dates: start: 20070627, end: 20071101
  2. THALOMID [Suspect]
     Indication: PROSTATE CANCER
     Dosage: 100-200MG, DAILY, ORAL : 100 MG, 1 IN 1 D, ORAL : 200 MG, 2 IN 1 D, ORAL
     Route: 048
     Dates: start: 20071210, end: 20080101
  3. THALOMID [Suspect]
     Indication: PROSTATE CANCER
     Dosage: 100-200MG, DAILY, ORAL : 100 MG, 1 IN 1 D, ORAL : 200 MG, 2 IN 1 D, ORAL
     Route: 048
     Dates: start: 20080124, end: 20080101

REACTIONS (1)
  - DEATH [None]
